FAERS Safety Report 13871077 (Version 1)
Quarter: 2017Q3

REPORT INFORMATION
  Report Type: Report from Study
  Country: US (occurrence: US)
  Receive Date: 20170816
  Receipt Date: 20170816
  Transmission Date: 20171127
  Serious: Yes (Other)
  Sender: FDA-Public Use
  Company Number: US-AMGEN-USASL2017121520

PATIENT
  Age: 57 Year
  Sex: Female

DRUGS (2)
  1. NEUPOGEN [Suspect]
     Active Substance: FILGRASTIM
     Indication: PRODUCT USED FOR UNKNOWN INDICATION
     Dosage: UNK
     Route: 065
  2. KYPROLIS [Suspect]
     Active Substance: CARFILZOMIB
     Indication: PLASMA CELL MYELOMA
     Dosage: UNK
     Route: 065

REACTIONS (12)
  - Laboratory test abnormal [Unknown]
  - Neoplasm [Unknown]
  - Asthenia [Unknown]
  - Pyrexia [Unknown]
  - Drug effect decreased [Unknown]
  - Feeling abnormal [Unknown]
  - Headache [Unknown]
  - Fatigue [Unknown]
  - Head injury [Unknown]
  - Pain [Unknown]
  - Gastrointestinal disorder [Unknown]
  - Alopecia [Unknown]

NARRATIVE: CASE EVENT DATE: 2016
